FAERS Safety Report 6992595-9 (Version None)
Quarter: 2010Q3

REPORT INFORMATION
  Report Type: 
  Country: None (occurrence: None)
  Receive Date: 20100917
  Receipt Date: 20100909
  Transmission Date: 20110219
  Serious: Yes (Death)
  Sender: FDA-Public Use
  Company Number: FI-TEVA-248524ISR

PATIENT
  Sex: Male

DRUGS (2)
  1. OXALIPLATIN [Suspect]
     Indication: BILE DUCT CANCER
     Route: 042
     Dates: start: 20100527, end: 20100708
  2. GEMCITABINE [Suspect]
     Route: 042
     Dates: start: 20100527, end: 20100708

REACTIONS (2)
  - CHEST DISCOMFORT [None]
  - MYOCARDIAL INFARCTION [None]
